FAERS Safety Report 7790259-5 (Version None)
Quarter: 2011Q3

REPORT INFORMATION
  Report Type: 
  Country: None (occurrence: None)
  Receive Date: 20110930
  Receipt Date: 20110915
  Transmission Date: 20111222
  Serious: Yes (Hospitalization, Disabling)
  Sender: FDA-Public Use
  Company Number: DE-UCBSA-005775

PATIENT
  Sex: Female
  Weight: 64 kg

DRUGS (15)
  1. METHOTREXATE SODIUM [Concomitant]
     Indication: RHEUMATOID ARTHRITIS
     Route: 058
     Dates: start: 20090310
  2. PANTOPRAZOLE [Concomitant]
     Dates: start: 20100223
  3. CERTOLIZUMAB PEGOL [Suspect]
     Dosage: NO OF DOSES:3
     Route: 058
  4. CERTOLIZUMAB PEGOL [Suspect]
     Route: 058
     Dates: start: 20091126, end: 20100107
  5. FOLIC ACID [Concomitant]
     Indication: PROPHYLAXIS
     Route: 048
     Dates: start: 20070315
  6. CALCIUM / VITAMIN D [Concomitant]
     Indication: OSTEOPOROSIS
     Dosage: 600/400 MG DAILY
     Route: 048
     Dates: start: 20070221
  7. DEKRISTOL [Concomitant]
     Indication: OSTEOPOROSIS
     Dosage: 20 000 IE MONTHLY
     Route: 048
     Dates: start: 20090723
  8. NOVAMINSULFON [Concomitant]
     Indication: RHEUMATOID ARTHRITIS
     Dosage: 20 DROPS 3 TIMES A DAY
     Dates: start: 20090723
  9. PROMETHAZINE HCL [Concomitant]
     Indication: SLEEP DISORDER
     Route: 048
     Dates: start: 20091015
  10. RANITIC [Concomitant]
     Indication: PROPHYLAXIS AGAINST GASTROINTESTINAL ULCER
     Route: 048
     Dates: start: 20070524
  11. CERTOLIZUMAB PEGOL [Suspect]
     Indication: RHEUMATOID ARTHRITIS
     Dosage: NO OF DOSES:3
     Route: 058
  12. DICLOFENAC [Concomitant]
     Indication: RHEUMATOID ARTHRITIS
     Dosage: 50 MG ONCE TO THREE TIMES DAILY
     Route: 048
     Dates: start: 20080513
  13. SULFASALAZINE [Concomitant]
     Indication: RHEUMATOID ARTHRITIS
     Route: 048
     Dates: start: 20090505
  14. PREDNISOLONE [Concomitant]
     Indication: RHEUMATOID ARTHRITIS
     Route: 048
     Dates: start: 20090505
  15. MAGNESIUM VERLA [Concomitant]
     Indication: MUSCLE SPASMS
     Route: 048
     Dates: start: 20070121

REACTIONS (2)
  - INTERVERTEBRAL DISC PROTRUSION [None]
  - DISSEMINATED TUBERCULOSIS [None]
